FAERS Safety Report 21508747 (Version 3)
Quarter: 2022Q4

REPORT INFORMATION
  Report Type: Report from Study
  Country: US (occurrence: US)
  Receive Date: 20221026
  Receipt Date: 20221220
  Transmission Date: 20230113
  Serious: Yes (Other)
  Sender: FDA-Public Use
  Company Number: US-BAYER-2022A141764

PATIENT
  Age: 45 Year
  Sex: Female

DRUGS (4)
  1. STIVARGA [Suspect]
     Active Substance: REGORAFENIB
     Indication: Gastrointestinal stromal tumour
     Dosage: 80 MG, QD (21 DAYS, THEN OFF FOR 7 DAYS)
     Route: 048
  2. STIVARGA [Suspect]
     Active Substance: REGORAFENIB
     Indication: Colon cancer
     Dosage: 160 MG, QD (21 DAYS ON, 7 DAYS OFF)
     Route: 048
     Dates: start: 20221003
  3. STIVARGA [Suspect]
     Active Substance: REGORAFENIB
     Indication: Gastrointestinal stromal tumour
     Dosage: 120 MG, QD (FOR 21 DAYS THEN OFF FOR 7 DAYS)
  4. COLACE [Concomitant]
     Active Substance: DOCUSATE SODIUM
     Dosage: UNK

REACTIONS (17)
  - Abdominal discomfort [Not Recovered/Not Resolved]
  - Surgery [None]
  - Diarrhoea [Not Recovered/Not Resolved]
  - Fatigue [Not Recovered/Not Resolved]
  - Off label use [None]
  - Faeces soft [Not Recovered/Not Resolved]
  - Pain [Recovering/Resolving]
  - Musculoskeletal stiffness [Not Recovered/Not Resolved]
  - Palmar-plantar erythrodysaesthesia syndrome [Not Recovered/Not Resolved]
  - Skin exfoliation [Not Recovered/Not Resolved]
  - Erythema [Not Recovered/Not Resolved]
  - Myalgia [Not Recovered/Not Resolved]
  - Glossitis [Not Recovered/Not Resolved]
  - Cough [Not Recovered/Not Resolved]
  - Splinter haemorrhages [Not Recovered/Not Resolved]
  - Dry skin [Not Recovered/Not Resolved]
  - Erythema [Not Recovered/Not Resolved]

NARRATIVE: CASE EVENT DATE: 20221011
